FAERS Safety Report 20133611 (Version 2)
Quarter: 2021Q4

REPORT INFORMATION
  Report Type: Spontaneous
  Country: US (occurrence: US)
  Receive Date: 20211201
  Receipt Date: 20211203
  Transmission Date: 20220304
  Serious: Yes (Other)
  Sender: FDA-Public Use
  Company Number: US-BROWN + BURK(UK) LIMITED-ML2021-02350

PATIENT
  Age: 72 Year
  Sex: Male

DRUGS (3)
  1. DORZOLAMIDE\TIMOLOL [Suspect]
     Active Substance: DORZOLAMIDE\TIMOLOL
     Indication: Glaucoma
     Dosage: 1 DROP IN EACH EYE 2 TIMES DAILY (1 DROP IN EACH EYE IN MORNING AND EVENING)
     Route: 047
     Dates: start: 20210927, end: 20211003
  2. ATORVASTATIN [Concomitant]
     Active Substance: ATORVASTATIN
     Dosage: HE TAKES IT EVERY DAY
     Dates: start: 20200101
  3. ASPIRIN [Concomitant]
     Active Substance: ASPIRIN
     Dosage: I WAS TAKING ONE 81MG ASPIRIN AND VYZULTA EYE DROPS EACH EVENING

REACTIONS (1)
  - Arrhythmia [Recovered/Resolved]

NARRATIVE: CASE EVENT DATE: 20210927
